FAERS Safety Report 4357511-7 (Version None)
Quarter: 2004Q2

REPORT INFORMATION
  Report Type: 
  Country: None (occurrence: None)
  Receive Date: 20040510
  Receipt Date: 20040426
  Transmission Date: 20050107
  Serious: Yes (Other)
  Sender: FDA-Public Use
  Company Number: BR-JNJFOC-20040500110

PATIENT
  Age: 51 Year
  Sex: Male
  Weight: 73 kg

DRUGS (5)
  1. TYLEX (ACETAMINOPHEN/CODEINE) TABLETS [Suspect]
     Indication: HEADACHE
     Dosage: 360 MG, 1 IN 1 DAY, ORAL
     Route: 048
     Dates: start: 19940410
  2. AAS (ACETYLSALICYLIC ACID) [Concomitant]
  3. CAPTOPRIL [Concomitant]
  4. MONOCORDIL (ISOSORBIDE MONONITRATE) [Concomitant]
  5. PURAN T4 (LEVOTHYROXINE SODIUM) [Concomitant]

REACTIONS (4)
  - ACUTE MYOCARDIAL INFARCTION [None]
  - CEREBRAL ISCHAEMIA [None]
  - DRUG DEPENDENCE [None]
  - HYPERTENSION [None]
